FAERS Safety Report 7406253-X (Version None)
Quarter: 2011Q2

REPORT INFORMATION
  Report Type: 
  Country: None (occurrence: None)
  Receive Date: 20110411
  Receipt Date: 20110404
  Transmission Date: 20111010
  Serious: Yes (Hospitalization)
  Sender: FDA-Public Use
  Company Number: DE-ABBOTT-11P-062-0699969-00

PATIENT
  Sex: Female
  Weight: 92 kg

DRUGS (3)
  1. PREDNISOLONE [Concomitant]
     Indication: RHEUMATOID ARTHRITIS
     Dosage: 5MG DAILY
  2. HUMIRA [Suspect]
     Indication: RHEUMATOID ARTHRITIS
     Route: 058
     Dates: start: 20090916, end: 20100913
  3. HUMIRA [Suspect]
     Route: 058
     Dates: start: 20100101

REACTIONS (4)
  - HEADACHE [None]
  - HYPERHIDROSIS [None]
  - GASTROOESOPHAGEAL REFLUX DISEASE [None]
  - DYSPEPSIA [None]
